FAERS Safety Report 22385846 (Version 2)
Quarter: 2023Q2

REPORT INFORMATION
  Report Type: Spontaneous
  Country: JP (occurrence: JP)
  Receive Date: 20230530
  Receipt Date: 20230612
  Transmission Date: 20230722
  Serious: Yes (Disabling)
  Sender: FDA-Public Use
  Company Number: JP-APIL-2315601US

PATIENT
  Age: 68 Year
  Sex: Female

DRUGS (4)
  1. BRIMONIDINE TARTRATE\TIMOLOL MALEATE [Suspect]
     Active Substance: BRIMONIDINE TARTRATE\TIMOLOL MALEATE
     Indication: Open angle glaucoma
     Route: 047
     Dates: end: 202304
  2. LATANOPROST [Suspect]
     Active Substance: LATANOPROST
     Indication: Open angle glaucoma
     Route: 047
     Dates: end: 20230408
  3. RIPASUDIL HYDROCHLORIDE DIHYDRATE [Concomitant]
     Active Substance: RIPASUDIL HYDROCHLORIDE DIHYDRATE
     Indication: Open angle glaucoma
     Route: 047
     Dates: end: 20230408
  4. OMIDENEPAG ISOPROPYL [Concomitant]
     Active Substance: OMIDENEPAG ISOPROPYL
     Indication: Open angle glaucoma
     Route: 047
     Dates: end: 20230408

REACTIONS (1)
  - Corneal opacity [Recovered/Resolved with Sequelae]

NARRATIVE: CASE EVENT DATE: 20220901
